FAERS Safety Report 7822741-6 (Version None)
Quarter: 2011Q4

REPORT INFORMATION
  Report Type: 
  Country: None (occurrence: None)
  Receive Date: 20111018
  Receipt Date: 20110915
  Transmission Date: 20120403
  Serious: Yes (Hospitalization, Other)
  Sender: FDA-Public Use
  Company Number: AR-ROCHE-GNE323491

PATIENT
  Sex: Female

DRUGS (1)
  1. XOLAIR [Suspect]
     Indication: ASTHMA
     Dosage: 2 AMP, 1/MONTH, DOSE=2 AMP, DAILY DOSE=.066 AMP, TOTAL DOSE=2 AMP
     Route: 065
     Dates: end: 20110801

REACTIONS (3)
  - HYPOTHERMIA [None]
  - HYPOTENSION [None]
  - ADRENAL INSUFFICIENCY [None]
